FAERS Safety Report 10485962 (Version 1)
Quarter: 2014Q4

REPORT INFORMATION
  Report Type: Report from Study
  Country: GB (occurrence: GB)
  Receive Date: 20141001
  Receipt Date: 20141001
  Transmission Date: 20150528
  Serious: Yes (Other)
  Sender: FDA-Public Use
  Company Number: GB-AMGEN-GBRSP2014074222

PATIENT
  Sex: Female

DRUGS (1)
  1. PROLIA [Suspect]
     Active Substance: DENOSUMAB
     Indication: OSTEOPOROSIS POSTMENOPAUSAL
     Dosage: UNK
     Route: 065

REACTIONS (8)
  - Rheumatoid arthritis [Unknown]
  - Groin pain [Unknown]
  - Abnormal loss of weight [Unknown]
  - Osteoarthritis [Unknown]
  - Surgery [Unknown]
  - Deep vein thrombosis [Unknown]
  - Depression [Unknown]
  - Bone density abnormal [Unknown]
